FAERS Safety Report 6759499-8 (Version None)
Quarter: 2010Q2

REPORT INFORMATION
  Report Type: 
  Country: None (occurrence: None)
  Receive Date: 20100603
  Receipt Date: 20100527
  Transmission Date: 20101027
  Serious: Yes (Hospitalization, Other)
  Sender: FDA-Public Use
  Company Number: 012591

PATIENT
  Sex: Female

DRUGS (10)
  1. XYZAL [Suspect]
     Indication: RHINITIS ALLERGIC
     Dosage: (5 MG ORAL)
     Route: 048
     Dates: start: 20091015, end: 20091023
  2. OFLOCET /00731801/ (OFLOCET 200 MG) (NOT SPECIFIED) [Suspect]
     Indication: INFECTION
     Dosage: (200 MG BID, 400 MG DAILY ORAL)
     Route: 048
     Dates: start: 20091027, end: 20091102
  3. LAMALINE /01708901/ (LAMALINE) (NOT SPECIFIED) [Suspect]
     Indication: PAIN
     Dosage: (ORAL)
     Route: 048
     Dates: start: 20091015, end: 20091023
  4. DERINOX /00886201/ (DERINOX) [Suspect]
     Indication: RHINITIS ALLERGIC
     Dosage: (NASAL)
     Route: 045
     Dates: start: 20091015, end: 20091023
  5. DEPAKOTE [Concomitant]
  6. EFFEXOR [Concomitant]
  7. EQUANIL [Concomitant]
  8. NOCTRAN 10 [Concomitant]
  9. RIVOTRIL [Concomitant]
  10. MABTHERA [Concomitant]

REACTIONS (3)
  - AGRANULOCYTOSIS [None]
  - CONDITION AGGRAVATED [None]
  - SYSTEMIC LUPUS ERYTHEMATOSUS [None]
